FAERS Safety Report 5377619-7 (Version None)
Quarter: 2007Q2

REPORT INFORMATION
  Report Type: 
  Country: None (occurrence: None)
  Receive Date: 20070530
  Receipt Date: 20070301
  Transmission Date: 20071010
  Serious: No
  Sender: FDA-Public Use
  Company Number: 2007PV030919

PATIENT
  Sex: Female

DRUGS (3)
  1. BYETTA [Suspect]
     Indication: DIABETES MELLITUS
     Dosage: 5 MCG;BID;SC, SC
     Route: 058
     Dates: start: 20070228
  2. METFORMIN HCL [Concomitant]
  3. GLUCOTROL [Concomitant]

REACTIONS (2)
  - BLOOD GLUCOSE INCREASED [None]
  - PAIN IN EXTREMITY [None]
